FAERS Safety Report 8793284 (Version 2)
Quarter: 2012Q4

REPORT INFORMATION
  Report Type: 
  Country: SE (occurrence: SE)
  Receive Date: 20120918
  Receipt Date: 20121101
  Transmission Date: 20130627
  Serious: Yes (Life-Threatening, Hospitalization)
  Sender: FDA-Public Use
  Company Number: SE-BRISTOL-MYERS SQUIBB COMPANY-16948580

PATIENT
  Age: 79 Year
  Sex: Male

DRUGS (10)
  1. COAPROVEL TABS 300MG/ 25MG [Suspect]
     Indication: HYPOTONIA
     Dosage: film-coated tablets
     Route: 048
     Dates: start: 20080108, end: 20120406
  2. COAPROVEL TABS 300MG/ 25MG [Suspect]
     Indication: HYPERTENSION
     Dosage: film-coated tablets
     Route: 048
     Dates: start: 20080108, end: 20120406
  3. LASIX RETARD [Suspect]
     Indication: OEDEMA
     Dosage: Hard caps
     Route: 048
     Dates: start: 20100531, end: 20120406
  4. PULMICORT [Concomitant]
  5. SEREVENT [Concomitant]
  6. VENTOLINE [Concomitant]
     Dosage: Diskus
  7. WARAN TABS 2.5 MG [Concomitant]
  8. ALLOPURINOL [Concomitant]
  9. ACETYLCYSTEINE [Concomitant]
  10. ATROVENT [Concomitant]

REACTIONS (3)
  - Alkalosis [Recovered/Resolved]
  - Hyponatraemia [Unknown]
  - Renal failure acute [Recovered/Resolved]
